FAERS Safety Report 8431523-6 (Version None)
Quarter: 2012Q2

REPORT INFORMATION
  Report Type: 
  Country: None (occurrence: None)
  Receive Date: 20120607
  Receipt Date: 20120607
  Transmission Date: 20120825
  Serious: Yes (Other)
  Sender: FDA-Public Use
  Company Number: None

PATIENT
  Sex: Male
  Weight: 74.6167 kg

DRUGS (2)
  1. LENALIDOMIDE [Suspect]
     Indication: DIFFUSE LARGE B-CELL LYMPHOMA
     Dosage: 10 MG DAILY ORAL
     Route: 048
     Dates: start: 20090820, end: 20110425
  2. CRESTOR [Concomitant]

REACTIONS (6)
  - INCREASED TENDENCY TO BRUISE [None]
  - FATIGUE [None]
  - PANCYTOPENIA [None]
  - STEM CELL TRANSPLANT [None]
  - ACUTE MYELOID LEUKAEMIA [None]
  - DIZZINESS [None]
